FAERS Safety Report 9914265 (Version 3)
Quarter: 2014Q3

REPORT INFORMATION
  Report Type: Spontaneous
  Country: US (occurrence: None)
  Receive Date: 20140218
  Receipt Date: 20140710
  Transmission Date: 20150326
  Serious: Yes (Other)
  Sender: FDA-Public Use
  Company Number: 2014-US-001697

PATIENT
  Age: 55 Year
  Sex: Male

DRUGS (1)
  1. XYREM [Suspect]
     Active Substance: SODIUM OXYBATE
     Indication: NARCOLEPSY
     Route: 048
     Dates: start: 201005, end: 2010

REACTIONS (6)
  - Osteoporosis [None]
  - Fall [None]
  - Convulsion [None]
  - Somnambulism [None]
  - Bone tuberculosis [None]
  - Head injury [None]
